FAERS Safety Report 7152956-4 (Version None)
Quarter: 2010Q4

REPORT INFORMATION
  Report Type: 
  Country: None (occurrence: None)
  Receive Date: 20101213
  Receipt Date: 20101130
  Transmission Date: 20110411
  Serious: Yes (Hospitalization, Other)
  Sender: FDA-Public Use
  Company Number: US-ELI_LILLY_AND_COMPANY-US201006002506

PATIENT
  Sex: Female
  Weight: 60.317 kg

DRUGS (24)
  1. FORTEO [Suspect]
     Indication: OSTEOPOROSIS
     Dosage: 20 UG, DAILY (1/D)
     Route: 065
     Dates: start: 20090916
  2. LEVOTHYROXINE SODIUM [Concomitant]
  3. DIOVAN [Concomitant]
     Indication: BLOOD PRESSURE
     Dosage: 240 MG, 160 MG IN MORNING AND 80 MG AT NIGHT
     Route: 065
  4. OMEPRAZOLE [Concomitant]
     Indication: REFLUX GASTRITIS
     Dosage: 20 MG, 2/D
     Route: 065
  5. TYLENOL (CAPLET) [Concomitant]
  6. CALCIUM WITH VITAMIN D [Concomitant]
  7. LOVAZA [Concomitant]
  8. COQ10 [Concomitant]
  9. VITAMIN E [Concomitant]
     Dosage: 400 UNITS, UNKNOWN
     Route: 065
  10. ASCORBIC ACID [Concomitant]
     Dosage: 500
     Route: 065
  11. MULTIVITAMIN AND MINERAL [Concomitant]
  12. VITAMIN B COMPLEX [Concomitant]
     Dosage: UNK, DAILY (1/D)
     Route: 065
  13. CLONIDINE [Concomitant]
     Indication: BLOOD PRESSURE
     Dosage: 0.2 MG, UNKNOWN
     Route: 065
  14. ZYRTEC [Concomitant]
     Indication: HYPERSENSITIVITY
     Dosage: 10 MG, EACH EVENING
     Route: 065
  15. MELATONIN [Concomitant]
     Indication: FEELING OF RELAXATION
     Dosage: 3 MG, HALF A TABLET
     Route: 065
  16. FLOVENT [Concomitant]
     Indication: ASTHMA
     Dosage: 110 UG, 2/D
     Route: 065
  17. NASONEX [Concomitant]
     Indication: HYPERSENSITIVITY
     Dosage: 50 UG, UNKNOWN
     Route: 065
  18. VENTOLIN                                /SCH/ [Concomitant]
     Dosage: 2 PUFFS IN THE MORNING
     Route: 065
  19. LORTAB [Concomitant]
     Dosage: 5 MG/500MG
     Route: 065
  20. METAMUCIL-2 [Concomitant]
     Indication: ABDOMINAL DISCOMFORT
  21. XALATAN [Concomitant]
     Indication: GLAUCOMA
     Dosage: 0.005 %, ONE DROP IN ACH EYE
     Route: 065
  22. CALCIUM CITRATE WITH VITAMIN D [Concomitant]
     Dosage: 600 MG, UNKNOWN
     Route: 065
  23. THYROID [Concomitant]
     Dosage: 75 UG, UNK
  24. THYROID [Concomitant]
     Dosage: 88 UG, UNK

REACTIONS (15)
  - ABDOMINAL PAIN UPPER [None]
  - ANKLE OPERATION [None]
  - FALL [None]
  - FATIGUE [None]
  - HEADACHE [None]
  - INJECTION SITE HAEMATOMA [None]
  - JOINT DISLOCATION [None]
  - JOINT INJURY [None]
  - JOINT SWELLING [None]
  - LIGAMENT RUPTURE [None]
  - MALAISE [None]
  - NAUSEA [None]
  - OSTEOARTHRITIS [None]
  - PAIN [None]
  - PAIN IN EXTREMITY [None]
